FAERS Safety Report 6736719-7 (Version None)
Quarter: 2010Q2

REPORT INFORMATION
  Report Type: 
  Country: None (occurrence: None)
  Receive Date: 20100520
  Receipt Date: 20100520
  Transmission Date: 20101027
  Serious: Yes (Other)
  Sender: FDA-Public Use
  Company Number: None

PATIENT
  Age: 37 Year
  Sex: Female
  Weight: 47.6277 kg

DRUGS (2)
  1. NOVIGIL 50 MG CEPHALON [Suspect]
     Indication: CHRONIC FATIGUE SYNDROME
     Dosage: ONE DOSE
     Dates: start: 20100519, end: 20100519
  2. NOVIGIL 50 MG CEPHALON [Suspect]
     Indication: SLEEP DISORDER
     Dosage: ONE DOSE
     Dates: start: 20100519, end: 20100519

REACTIONS (4)
  - BURNING SENSATION [None]
  - OROPHARYNGEAL PAIN [None]
  - PRURITUS [None]
  - SENSORY DISTURBANCE [None]
